FAERS Safety Report 20389275 (Version 1)
Quarter: 2022Q1

REPORT INFORMATION
  Report Type: Spontaneous
  Country: GB (occurrence: GB)
  Receive Date: 20220128
  Receipt Date: 20220128
  Transmission Date: 20220423
  Serious: Yes (Disabling, Other)
  Sender: FDA-Public Use
  Company Number: GB-ALFASIGMA-2022.20550

PATIENT
  Sex: Female

DRUGS (4)
  1. RIFAXIMIN [Suspect]
     Active Substance: RIFAXIMIN
     Indication: Abdominal discomfort
     Route: 048
     Dates: start: 20211210, end: 20211217
  2. BENDROFLUMETHIAZIDE [Concomitant]
     Active Substance: BENDROFLUMETHIAZIDE
     Indication: Product used for unknown indication
  3. BISOPROLOL FUMARATE [Concomitant]
     Active Substance: BISOPROLOL FUMARATE
     Indication: Product used for unknown indication
  4. SODIUM PICOSULFATE [Concomitant]
     Active Substance: SODIUM PICOSULFATE
     Indication: Product used for unknown indication

REACTIONS (23)
  - Sensory loss [Not Recovered/Not Resolved]
  - Hypopnoea [Not Recovered/Not Resolved]
  - Head discomfort [Not Recovered/Not Resolved]
  - Disturbance in attention [Not Recovered/Not Resolved]
  - Memory impairment [Not Recovered/Not Resolved]
  - Dry skin [Not Recovered/Not Resolved]
  - Gingival bleeding [Unknown]
  - Generalised oedema [Unknown]
  - Tremor [Unknown]
  - Hair texture abnormal [Unknown]
  - Onychoclasis [Unknown]
  - Trichorrhexis [Unknown]
  - Peripheral swelling [Unknown]
  - Swelling face [Not Recovered/Not Resolved]
  - Hyposmia [Not Recovered/Not Resolved]
  - Confusional state [Not Recovered/Not Resolved]
  - Ageusia [Not Recovered/Not Resolved]
  - Tinnitus [Not Recovered/Not Resolved]
  - Paraesthesia [Not Recovered/Not Resolved]
  - Hypoaesthesia [Unknown]
  - Insomnia [Not Recovered/Not Resolved]
  - Headache [Not Recovered/Not Resolved]
  - Diarrhoea [Not Recovered/Not Resolved]
